FAERS Safety Report 8782635 (Version 1)
Quarter: 2012Q4

REPORT INFORMATION
  Report Type: 
  Country: DE (occurrence: DE)
  Receive Date: 20120913
  Receipt Date: 20120913
  Transmission Date: 20130627
  Serious: Yes (Other)
  Sender: FDA-Public Use
  Company Number: DE-B.I. PHARMACEUTICALS,INC./RIDGEFIELD-2012-DE-02087DE

PATIENT
  Age: 88 Year
  Sex: Female

DRUGS (6)
  1. PRADAXA [Suspect]
     Indication: ATRIAL FIBRILLATION
     Dosage: 220 mg
     Dates: start: 20120806
  2. PRADAXA [Suspect]
     Dosage: 150 mg
  3. PRADAXA [Suspect]
     Dosage: 225 mg
  4. TOREM [Suspect]
  5. DELIX [Suspect]
  6. BELOK ZOC MITE [Suspect]

REACTIONS (10)
  - Creatinine renal clearance decreased [Unknown]
  - Throat irritation [Unknown]
  - Productive cough [Unknown]
  - Sleep disorder [Unknown]
  - Fatigue [Unknown]
  - Asthenia [Unknown]
  - Disturbance in attention [Unknown]
  - Memory impairment [Unknown]
  - General physical health deterioration [Unknown]
  - Off label use [None]
